FAERS Safety Report 15812913 (Version 1)
Quarter: 2019Q1

REPORT INFORMATION
  Report Type: Spontaneous
  Country: CN (occurrence: CN)
  Receive Date: 20190111
  Receipt Date: 20190111
  Transmission Date: 20190417
  Serious: Yes (Hospitalization, Other)
  Sender: FDA-Public Use
  Company Number: CN-MYLANLABS-2019M1002309

PATIENT
  Age: 37 Year
  Sex: Male

DRUGS (2)
  1. DEXAMETHASONE. [Suspect]
     Active Substance: DEXAMETHASONE
     Indication: HENOCH-SCHONLEIN PURPURA
     Route: 065
  2. CETIRIZINE HYDROCHLORIDE. [Concomitant]
     Active Substance: CETIRIZINE HYDROCHLORIDE
     Indication: HENOCH-SCHONLEIN PURPURA
     Dosage: 5 MG FOR 2 TIMES IN 2 DAY AND 7.5 MG FOR ONE TIME PER DAY IN THE FOLLOWING 2 DAY.
     Route: 048

REACTIONS (1)
  - Antibody test abnormal [Recovered/Resolved]
